FAERS Safety Report 23626759 (Version 6)
Quarter: 2025Q1

REPORT INFORMATION
  Report Type: Spontaneous
  Country: US (occurrence: US)
  Receive Date: 20240313
  Receipt Date: 20250227
  Transmission Date: 20250409
  Serious: Yes (Other)
  Sender: PFIZER
  Company Number: US-PFIZER INC-PV202400034490

PATIENT
  Age: 61 Year
  Sex: Female

DRUGS (1)
  1. XELJANZ [Suspect]
     Active Substance: TOFACITINIB CITRATE

REACTIONS (15)
  - Diabetes mellitus [Unknown]
  - Fatigue [Unknown]
  - Sensitivity to weather change [Unknown]
  - Arthralgia [Unknown]
  - Upper respiratory tract infection bacterial [Recovering/Resolving]
  - Gastrooesophageal reflux disease [Not Recovered/Not Resolved]
  - Rash pruritic [Unknown]
  - Pain in extremity [Recovered/Resolved]
  - Condition aggravated [Recovered/Resolved]
  - Nasal congestion [Unknown]
  - Headache [Unknown]
  - Sinusitis [Unknown]
  - Constipation [Unknown]
  - Irritable bowel syndrome [Unknown]
  - Product dose omission in error [Unknown]

NARRATIVE: CASE EVENT DATE: 20240308
